FAERS Safety Report 12918350 (Version 1)
Quarter: 2016Q4

REPORT INFORMATION
  Report Type: Spontaneous
  Country: US (occurrence: US)
  Receive Date: 20161107
  Receipt Date: 20161107
  Transmission Date: 20170207
  Serious: No
  Sender: FDA-Public Use
  Company Number: US-ETHYPHARM USA CORP-EY-BPN-US-2016-013

PATIENT
  Sex: Male

DRUGS (11)
  1. ARTIFICIAL TEARS [Concomitant]
     Active Substance: GLYCERIN\HYPROMELLOSES\POLYETHYLENE GLYCOL 400
  2. PANTOPRAZOLE [Concomitant]
     Active Substance: PANTOPRAZOLE SODIUM
  3. AMMONIUM LACTATE LOTION [Concomitant]
     Active Substance: AMMONIUM LACTATE
  4. NICOTINE TRANSDERMAL SYSTEM [Concomitant]
     Active Substance: NICOTINE
  5. BUPRENORPHINE AND NALOXONE [Suspect]
     Active Substance: BUPRENORPHINE\NALOXONE
     Indication: PRODUCT USED FOR UNKNOWN INDICATION
     Route: 060
  6. DICLOFENAC [Concomitant]
     Active Substance: DICLOFENAC
  7. FLUTICASONE [Concomitant]
     Active Substance: FLUTICASONE\FLUTICASONE PROPIONATE
  8. ALBUTEROL. [Concomitant]
     Active Substance: ALBUTEROL
  9. LIDOCAINE CREAM [Concomitant]
  10. FUROSEMIDE. [Concomitant]
     Active Substance: FUROSEMIDE
  11. UREA CREAM [Concomitant]

REACTIONS (3)
  - Product substitution issue [Unknown]
  - Vomiting [None]
  - Nausea [None]
